FAERS Safety Report 15258862 (Version 1)
Quarter: 2018Q3

REPORT INFORMATION
  Report Type: Spontaneous
  Country: US (occurrence: US)
  Receive Date: 20180718
  Receipt Date: 20180718
  Transmission Date: 20181010
  Serious: No
  Sender: FDA-Public Use
  Company Number: None

PATIENT
  Sex: Female

DRUGS (6)
  1. RASUVO [Suspect]
     Active Substance: METHOTREXATE SODIUM
     Indication: FIBROMYALGIA
     Route: 058
     Dates: start: 201805
  2. LEUCOVORIN 5MG PFIZER [Suspect]
     Active Substance: LEUCOVORIN
     Route: 048
     Dates: start: 201805
  3. RASUVO [Suspect]
     Active Substance: METHOTREXATE SODIUM
     Indication: PSORIATIC ARTHROPATHY
     Route: 058
     Dates: start: 201805
  4. RASUVO [Suspect]
     Active Substance: METHOTREXATE SODIUM
     Indication: OSTEOARTHRITIS
     Route: 058
     Dates: start: 201805
  5. RASUVO [Suspect]
     Active Substance: METHOTREXATE SODIUM
     Indication: LORDOSIS
     Route: 058
     Dates: start: 201805
  6. RASUVO [Suspect]
     Active Substance: METHOTREXATE SODIUM
     Indication: ANKYLOSING SPONDYLITIS
     Route: 058
     Dates: start: 201805

REACTIONS (1)
  - Sinus disorder [None]
